FAERS Safety Report 5800407-1 (Version None)
Quarter: 2008Q3

REPORT INFORMATION
  Report Type: 
  Country: None (occurrence: None)
  Receive Date: 20080702
  Receipt Date: 20080702
  Transmission Date: 20090109
  Serious: Yes (Other)
  Sender: FDA-Public Use
  Company Number: None

PATIENT
  Age: 36 Year
  Sex: Female
  Weight: 72.5755 kg

DRUGS (1)
  1. ARIPIPRAZOLE 10 MG BRISTOL-MYERS SQUIBB [Suspect]
     Indication: BIPOLAR II DISORDER
     Dosage: 10 MG DAILY PO
     Route: 048
     Dates: start: 20041120, end: 20050115

REACTIONS (8)
  - ILL-DEFINED DISORDER [None]
  - MOOD ALTERED [None]
  - NIGHT BLINDNESS [None]
  - VAGINAL HAEMORRHAGE [None]
  - VAGINAL ODOUR [None]
  - VISION BLURRED [None]
  - VISUAL ACUITY REDUCED [None]
  - VISUAL FIELD DEFECT [None]
